FAERS Safety Report 18556731 (Version 1)
Quarter: 2020Q4

REPORT INFORMATION
  Report Type: Spontaneous
  Country: IE (occurrence: IE)
  Receive Date: 20201128
  Receipt Date: 20201128
  Transmission Date: 20210114
  Serious: Yes (Other)
  Sender: FDA-Public Use
  Company Number: IE-TEVA-2020-IE-1853556

PATIENT
  Age: 77 Year
  Sex: Male

DRUGS (9)
  1. BENDAMUSTINE HYDROCHLORIDE. [Suspect]
     Active Substance: BENDAMUSTINE HYDROCHLORIDE
     Indication: DIFFUSE LARGE B-CELL LYMPHOMA
     Route: 042
     Dates: start: 2015
  2. DOXORUBICIN [Suspect]
     Active Substance: DOXORUBICIN
     Indication: DIFFUSE LARGE B-CELL LYMPHOMA
     Dosage: (RCHOP 3 CYCLES)
     Route: 065
     Dates: start: 2013
  3. GAZYVARO [Suspect]
     Active Substance: OBINUTUZUMAB
     Indication: MANTLE CELL LYMPHOMA
     Route: 042
     Dates: start: 202009
  4. RITUXIMAB. [Suspect]
     Active Substance: RITUXIMAB
     Indication: DIFFUSE LARGE B-CELL LYMPHOMA
     Dosage: (RCHOP 3 CYCLES)
     Route: 065
     Dates: start: 2013
  5. LENALIDOMIDE [Suspect]
     Active Substance: LENALIDOMIDE
     Indication: MANTLE CELL LYMPHOMA
     Route: 065
     Dates: start: 202009
  6. VINCRISTINE [Suspect]
     Active Substance: VINCRISTINE
     Indication: DIFFUSE LARGE B-CELL LYMPHOMA
     Dosage: (RCHOP 3 CYCLES)
     Route: 065
     Dates: start: 2013
  7. RITUXIMAB. [Suspect]
     Active Substance: RITUXIMAB
     Dosage: UNKNOWN FREQ. (R BENDA)
     Route: 065
     Dates: start: 20150101
  8. PREDNISONE. [Suspect]
     Active Substance: PREDNISONE
     Indication: DIFFUSE LARGE B-CELL LYMPHOMA
     Dosage: (RCHOP 3 CYCLES)
     Route: 065
     Dates: start: 2013
  9. CYCLOPHOSPHAMIDE. [Suspect]
     Active Substance: CYCLOPHOSPHAMIDE
     Indication: DIFFUSE LARGE B-CELL LYMPHOMA
     Dosage: (RCHOP 3 CYCLES)
     Route: 065
     Dates: start: 2013

REACTIONS (2)
  - Diffuse large B-cell lymphoma recurrent [Unknown]
  - Product use in unapproved indication [Unknown]

NARRATIVE: CASE EVENT DATE: 2015
